FAERS Safety Report 8502386-5 (Version None)
Quarter: 2012Q3

REPORT INFORMATION
  Report Type: 
  Country: None (occurrence: None)
  Receive Date: 20120711
  Receipt Date: 20120626
  Transmission Date: 20120928
  Serious: Yes (Other)
  Sender: FDA-Public Use
  Company Number: US-JNJFOC-20120613789

PATIENT
  Age: 79 Year
  Sex: Female

DRUGS (4)
  1. INFLIXIMAB, RECOMBINANT [Suspect]
     Indication: CROHN'S DISEASE
     Route: 042
  2. CLOPIDOGREL [Concomitant]
     Route: 065
  3. LISINOPRIL [Concomitant]
     Route: 065
  4. AZATHIOPRINE [Suspect]
     Indication: CROHN'S DISEASE
     Route: 065

REACTIONS (2)
  - TOOTH ABSCESS [None]
  - OSTEOMYELITIS BACTERIAL [None]
